FAERS Safety Report 7528595-X (Version None)
Quarter: 2011Q2

REPORT INFORMATION
  Report Type: 
  Country: None (occurrence: None)
  Receive Date: 20110607
  Receipt Date: 20040828
  Transmission Date: 20111010
  Serious: Yes (Hospitalization, Other)
  Sender: FDA-Public Use
  Company Number: PHFR2004GB03173

PATIENT
  Sex: Female

DRUGS (1)
  1. CLOZARIL [Suspect]
     Indication: SCHIZOPHRENIA
     Route: 048
     Dates: start: 20040716, end: 20040812

REACTIONS (6)
  - LIVER FUNCTION TEST ABNORMAL [None]
  - MALAISE [None]
  - DIARRHOEA [None]
  - CHOLECYSTITIS ACUTE [None]
  - PYREXIA [None]
  - VOMITING [None]
